FAERS Safety Report 19397622 (Version 1)
Quarter: 2021Q2

REPORT INFORMATION
  Report Type: Report from Study
  Country: None (occurrence: FR)
  Receive Date: 20210610
  Receipt Date: 20210610
  Transmission Date: 20210717
  Serious: Yes (Other)
  Sender: FDA-Public Use
  Company Number: FR-ABBVIE-21K-056-3942655-00

PATIENT
  Age: 74 Year
  Sex: Female

DRUGS (2)
  1. DUODOPA [Suspect]
     Active Substance: CARBIDOPA\LEVODOPA
     Indication: PARKINSON^S DISEASE
     Route: 050
     Dates: start: 201711
  2. DUODOPA [Suspect]
     Active Substance: CARBIDOPA\LEVODOPA

REACTIONS (11)
  - COVID-19 [Unknown]
  - Muscle rigidity [Unknown]
  - Constipation [Unknown]
  - Condition aggravated [Unknown]
  - Dyskinesia [Recovered/Resolved]
  - Abdominal pain [Unknown]
  - Bedridden [Unknown]
  - Mobility decreased [Unknown]
  - On and off phenomenon [Unknown]
  - Cognitive disorder [Recovering/Resolving]
  - Freezing phenomenon [Unknown]

NARRATIVE: CASE EVENT DATE: 202101
